FAERS Safety Report 10620169 (Version 1)
Quarter: 2014Q4

REPORT INFORMATION
  Report Type: Spontaneous
  Country: FI (occurrence: None)
  Receive Date: 20141128
  Receipt Date: 20141128
  Transmission Date: 20150529
  Serious: Yes (Life-Threatening, Hospitalization)
  Sender: FDA-Public Use
  Company Number: 2633924

PATIENT
  Age: 48 Year
  Sex: Female

DRUGS (6)
  1. PACLITAXEL. [Suspect]
     Active Substance: PACLITAXEL
     Indication: ANAL CANCER
     Dosage: 130 UNK??(NOT OTHERWISE SPECIFIED)
     Route: 042
     Dates: start: 20141009, end: 20141009
  2. PACLITAXEL. [Suspect]
     Active Substance: PACLITAXEL
     Indication: CHOLANGIOCARCINOMA
     Dosage: 130 UNK??(NOT OTHERWISE SPECIFIED)
     Route: 042
     Dates: start: 20141009, end: 20141009
  3. ZANTAC [Concomitant]
     Active Substance: RANITIDINE HYDROCHLORIDE
  4. PACLITAXEL. [Suspect]
     Active Substance: PACLITAXEL
     Indication: METASTASES TO LIVER
     Dosage: 130 UNK??(NOT OTHERWISE SPECIFIED)
     Route: 042
     Dates: start: 20141009, end: 20141009
  5. DEXAMETHASONE SODIUM PHOSPHATE. [Concomitant]
     Active Substance: DEXAMETHASONE SODIUM PHOSPHATE
  6. CETIRIZINE HYDROCHLORIDE. [Concomitant]
     Active Substance: CETIRIZINE HYDROCHLORIDE

REACTIONS (2)
  - Anaphylactic reaction [None]
  - Pulse absent [None]

NARRATIVE: CASE EVENT DATE: 20141009
